FAERS Safety Report 15335342 (Version 1)
Quarter: 2018Q3

REPORT INFORMATION
  Report Type: Spontaneous
  Country: HR (occurrence: HR)
  Receive Date: 20180830
  Receipt Date: 20180830
  Transmission Date: 20181010
  Serious: Yes (Hospitalization)
  Sender: FDA-Public Use
  Company Number: PHHY2018HR079926

PATIENT
  Age: 53 Year
  Sex: Male

DRUGS (5)
  1. FLUPHENAZINE [Suspect]
     Active Substance: FLUPHENAZINE
     Dosage: 3 MG
     Route: 065
  2. FLUPHENAZINE [Suspect]
     Active Substance: FLUPHENAZINE
     Indication: SCHIZOPHRENIA
     Dosage: 2.5 MG, TID
     Route: 065
  3. CLONAZEPAM. [Concomitant]
     Active Substance: CLONAZEPAM
     Indication: SCHIZOPHRENIA
     Dosage: 2 MG, QD
     Route: 051
  4. QUETIAPINE. [Suspect]
     Active Substance: QUETIAPINE
     Indication: SCHIZOPHRENIA
     Dosage: (200 MG OF QUETIAPINE 1/2, 1/2, 1 TABLET)
     Route: 048
  5. FLUPHENAZINE [Suspect]
     Active Substance: FLUPHENAZINE
     Dosage: 2.5 MG, BID
     Route: 065

REACTIONS (4)
  - Musculoskeletal chest pain [Unknown]
  - Hepatic enzyme increased [Recovering/Resolving]
  - Drug-induced liver injury [Recovered/Resolved]
  - Disease progression [Unknown]

NARRATIVE: CASE EVENT DATE: 201608
